FAERS Safety Report 4652619-0 (Version None)
Quarter: 2005Q2

REPORT INFORMATION
  Report Type: 
  Country: None (occurrence: None)
  Receive Date: 20050502
  Receipt Date: 20050126
  Transmission Date: 20051028
  Serious: Yes (Other)
  Sender: FDA-Public Use
  Company Number: MED000023

PATIENT
  Age: 63 Year
  Sex: Female

DRUGS (5)
  1. HEPARIN SODIUM AND 5% DEXTROSE (HEPARIN SODIUM AND DEXTROSE) [Suspect]
     Indication: CEREBROVASCULAR ACCIDENT
     Dosage: INTRAVENOUS
     Route: 042
  2. HEPARIN SODIUM AND 5% DEXTROSE (HEPARIN SODIUM AND DEXTROSE) [Suspect]
     Indication: MITRAL VALVE DISEASE
     Dosage: INTRAVENOUS
     Route: 042
  3. ALEVE [Concomitant]
  4. WARFARIN SODIUM [Concomitant]
  5. ASPIRIN [Concomitant]

REACTIONS (1)
  - ACTIVATED PARTIAL THROMBOPLASTIN TIME PROLONGED [None]
